FAERS Safety Report 24106666 (Version 1)
Quarter: 2024Q3

REPORT INFORMATION
  Report Type: Spontaneous
  Country: CN (occurrence: CN)
  Receive Date: 20240717
  Receipt Date: 20240717
  Transmission Date: 20241017
  Serious: Yes (Hospitalization, Disabling)
  Sender: ELI LILLY AND CO
  Company Number: CN-Merck Healthcare KGaA-2024037581

PATIENT
  Age: 77 Year
  Sex: Female

DRUGS (2)
  1. ERBITUX [Suspect]
     Active Substance: CETUXIMAB
     Indication: Colon cancer metastatic
     Dosage: 600 MG, 2/M
     Route: 041
     Dates: start: 20230227, end: 20240627
  2. CADONILIMAB [Suspect]
     Active Substance: CADONILIMAB
     Indication: Colon cancer metastatic
     Dosage: 375 MG, 2/M
     Route: 041
     Dates: start: 20240509, end: 20240606

REACTIONS (1)
  - Atrial fibrillation [Not Recovered/Not Resolved]

NARRATIVE: CASE EVENT DATE: 20240701
